FAERS Safety Report 20140581 (Version 1)
Quarter: 2021Q4

REPORT INFORMATION
  Report Type: Spontaneous
  Country: US (occurrence: None)
  Receive Date: 20211202
  Receipt Date: 20211202
  Transmission Date: 20220303
  Serious: Yes (Other)
  Sender: FDA-Public Use
  Company Number: None

PATIENT
  Age: 64 Year
  Sex: Male
  Weight: 97.07 kg

DRUGS (1)
  1. NORCO [Suspect]
     Active Substance: ACETAMINOPHEN\HYDROCODONE BITARTRATE
     Indication: Product used for unknown indication
     Dosage: FREQUENCY : 4 TIMES A DAY;?
     Route: 048
     Dates: start: 20070201

REACTIONS (3)
  - Suspected product quality issue [None]
  - Therapeutic response decreased [None]
  - Product substitution issue [None]

NARRATIVE: CASE EVENT DATE: 20210301
